FAERS Safety Report 5035310-0 (Version None)
Quarter: 2006Q2

REPORT INFORMATION
  Report Type: 
  Country: None (occurrence: None)
  Receive Date: 20060623
  Receipt Date: 20060623
  Transmission Date: 20061013
  Serious: Yes (Hospitalization)
  Sender: FDA-Public Use
  Company Number: None

PATIENT
  Sex: Female
  Weight: 58.6 kg

DRUGS (2)
  1. CYTARABINE [Suspect]
     Dosage: 28800 MG
     Dates: start: 20050518
  2. G-CSF (FILGRASTIM, AMGEN) [Suspect]
     Dosage: 3300 MCG
     Dates: start: 20050530

REACTIONS (7)
  - ATRIAL TACHYCARDIA [None]
  - CELLULITIS [None]
  - DYSPHAGIA [None]
  - FEBRILE NEUTROPENIA [None]
  - HERPES SIMPLEX [None]
  - LIP ULCERATION [None]
  - PHARYNGITIS [None]
